FAERS Safety Report 6911873-2 (Version None)
Quarter: 2010Q3

REPORT INFORMATION
  Report Type: 
  Country: None (occurrence: None)
  Receive Date: 20100806
  Receipt Date: 20070905
  Transmission Date: 20110219
  Serious: No
  Sender: FDA-Public Use
  Company Number: US-PFIZER INC-2007075137

PATIENT
  Sex: Female
  Weight: 95.25 kg

DRUGS (7)
  1. DETROL LA [Suspect]
     Indication: MICTURITION URGENCY
     Dates: start: 20070904
  2. SYNTHROID [Concomitant]
     Indication: HYPOTHYROIDISM
  3. ALLEGRA [Concomitant]
     Indication: HYPERSENSITIVITY
  4. ALLEGRA [Concomitant]
     Indication: URTICARIA
  5. CELEXA [Concomitant]
     Indication: ANXIETY
  6. CELEXA [Concomitant]
     Indication: DEPRESSION
  7. PREVACID [Concomitant]
     Indication: GASTROOESOPHAGEAL REFLUX DISEASE

REACTIONS (3)
  - DIZZINESS [None]
  - DRY MOUTH [None]
  - FATIGUE [None]
